FAERS Safety Report 20936791 (Version 4)
Quarter: 2022Q3

REPORT INFORMATION
  Report Type: Report from Study
  Country: US (occurrence: US)
  Receive Date: 20220609
  Receipt Date: 20220929
  Transmission Date: 20221026
  Serious: Yes (Other)
  Sender: FDA-Public Use
  Company Number: US-BEH-2022145320

PATIENT
  Age: 45 Year
  Sex: Male
  Weight: 71.202 kg

DRUGS (3)
  1. HIZENTRA [Suspect]
     Active Substance: HUMAN IMMUNOGLOBULIN G
     Indication: Chronic inflammatory demyelinating polyradiculoneuropathy
     Dosage: 28 GRAM, QW
     Route: 058
     Dates: start: 20220407
  2. HIZENTRA [Suspect]
     Active Substance: HUMAN IMMUNOGLOBULIN G
     Dosage: UNK
     Route: 058
     Dates: start: 20220721
  3. ASPIRIN [Concomitant]
     Active Substance: ASPIRIN
     Indication: Thrombosis prophylaxis
     Dosage: 81 MILLIGRAM, QD

REACTIONS (21)
  - Infusion site reaction [Recovered/Resolved]
  - Infusion site swelling [Unknown]
  - Infusion site extravasation [Unknown]
  - Infusion site haemorrhage [Unknown]
  - Infusion site swelling [Unknown]
  - Infusion site irritation [Unknown]
  - Infusion site swelling [Unknown]
  - Contusion [Unknown]
  - Infusion site haemorrhage [Unknown]
  - Wrong technique in product usage process [Unknown]
  - Venous injury [Unknown]
  - Wrong technique in product usage process [Unknown]
  - Infusion site haemorrhage [Unknown]
  - Liver function test increased [Unknown]
  - Herpes zoster [Unknown]
  - Infusion site irritation [Recovered/Resolved]
  - Infusion site pruritus [Recovered/Resolved]
  - Infusion site irritation [Unknown]
  - Infusion site pruritus [Unknown]
  - Headache [Recovered/Resolved]
  - Hypersensitivity [Recovered/Resolved]

NARRATIVE: CASE EVENT DATE: 20220401
